FAERS Safety Report 19284766 (Version 1)
Quarter: 2021Q2

REPORT INFORMATION
  Report Type: Spontaneous
  Country: US (occurrence: US)
  Receive Date: 20210521
  Receipt Date: 20210521
  Transmission Date: 20210717
  Serious: Yes (Other)
  Sender: FDA-Public Use
  Company Number: US-MYLANLABS-2021M1029262

PATIENT
  Age: 5 Year
  Sex: Female

DRUGS (1)
  1. PREDNISOLONE. [Suspect]
     Active Substance: PREDNISOLONE
     Indication: HYPOPLASTIC ANAEMIA
     Dosage: 2 MILLIGRAM/KILOGRAM, QD
     Route: 048

REACTIONS (1)
  - Therapy non-responder [Unknown]
